FAERS Safety Report 25897732 (Version 1)
Quarter: 2025Q4

REPORT INFORMATION
  Report Type: Spontaneous
  Country: US (occurrence: US)
  Receive Date: 20251008
  Receipt Date: 20251008
  Transmission Date: 20260118
  Serious: Yes (Death, Hospitalization, Other)
  Sender: PURDUE
  Company Number: US-PURDUE PHARMA-USA-2025-0321145

PATIENT
  Age: 25 Year
  Sex: Female

DRUGS (3)
  1. BUPRENORPHINE [Suspect]
     Active Substance: BUPRENORPHINE
     Indication: Drug withdrawal syndrome
     Dosage: UNK
     Route: 065
     Dates: start: 202207
  2. FENTANYL [Suspect]
     Active Substance: FENTANYL
     Indication: Product used for unknown indication
     Dosage: UNK
     Route: 065
  3. ALCOHOL (ALCOHOL) [Suspect]
     Active Substance: ALCOHOL
     Indication: Product used for unknown indication
     Dosage: UNK
     Route: 065

REACTIONS (8)
  - Pulmonary congestion [Fatal]
  - Vomiting [Fatal]
  - Brain injury [Unknown]
  - Oxygen saturation decreased [Unknown]
  - Sepsis [Unknown]
  - Condition aggravated [Unknown]
  - Gastric perforation [Unknown]
  - Drug screen positive [Unknown]

NARRATIVE: CASE EVENT DATE: 20220701
